FAERS Safety Report 8483218-0 (Version None)
Quarter: 2012Q3

REPORT INFORMATION
  Report Type: 
  Country: None (occurrence: None)
  Receive Date: 20120702
  Receipt Date: 20120625
  Transmission Date: 20120928
  Serious: No
  Sender: FDA-Public Use
  Company Number: US-B.I. PHARMACEUTICALS,INC./RIDGEFIELD-2012-BP-14457BP

PATIENT
  Sex: Female

DRUGS (3)
  1. MACROBID [Concomitant]
     Indication: URINARY TRACT INFECTION
     Dates: start: 20120601
  2. LEVAQUIN [Concomitant]
     Indication: URINARY TRACT INFECTION
     Dates: start: 20120601
  3. AGGRENOX [Suspect]
     Indication: CEREBROVASCULAR ACCIDENT PROPHYLAXIS
     Route: 048
     Dates: start: 20110101

REACTIONS (3)
  - BLOOD URINE PRESENT [None]
  - OEDEMA MOUTH [None]
  - DYSPHONIA [None]
